FAERS Safety Report 6819194-3 (Version None)
Quarter: 2010Q3

REPORT INFORMATION
  Report Type: 
  Country: None (occurrence: None)
  Receive Date: 20100707
  Receipt Date: 20100626
  Transmission Date: 20110219
  Serious: Yes (Hospitalization)
  Sender: FDA-Public Use
  Company Number: CA-JNJFOC-20100608475

PATIENT
  Sex: Male
  Weight: 124.5 kg

DRUGS (7)
  1. REMICADE [Suspect]
     Indication: ANKYLOSING SPONDYLITIS
     Dosage: A TOTAL OF 31 DOSES
     Route: 042
  2. REMICADE [Suspect]
     Route: 042
  3. VALPROATE SODIUM [Concomitant]
  4. ALTACE [Concomitant]
  5. HYDROCHLOROTHIAZIDE [Concomitant]
  6. METHOTREXATE [Concomitant]
  7. TYLENOL W/ CODEINE NO. 3 [Concomitant]

REACTIONS (4)
  - BACK PAIN [None]
  - CHEST PAIN [None]
  - MUSCULOSKELETAL STIFFNESS [None]
  - PULMONARY OEDEMA [None]
